FAERS Safety Report 9613556 (Version 2)
Quarter: 2013Q4

REPORT INFORMATION
  Report Type: Spontaneous
  Country: CH (occurrence: CH)
  Receive Date: 20131010
  Receipt Date: 20131112
  Transmission Date: 20140711
  Serious: Yes (Other)
  Sender: FDA-Public Use
  Company Number: CH-UCBSA-099221

PATIENT
  Sex: Female

DRUGS (2)
  1. CIMZIA [Suspect]
     Dates: start: 201305, end: 2013
  2. LEFLUNOMID [Suspect]
     Indication: RHEUMATOID ARTHRITIS
     Dosage: 20 MG
     Dates: start: 201304, end: 201309

REACTIONS (2)
  - Dermatitis allergic [Recovering/Resolving]
  - Neuropathy peripheral [Recovering/Resolving]
